FAERS Safety Report 18611989 (Version 1)
Quarter: 2020Q4

REPORT INFORMATION
  Report Type: Report from Study
  Country: None (occurrence: US)
  Receive Date: 20201214
  Receipt Date: 20201214
  Transmission Date: 20210114
  Serious: Yes (Hospitalization)
  Sender: FDA-Public Use
  Company Number: US-ABBVIE-20K-163-3688456-00

PATIENT
  Sex: Female

DRUGS (1)
  1. HUMIRA [Suspect]
     Active Substance: ADALIMUMAB
     Indication: ANKYLOSING SPONDYLITIS
     Dosage: CITRATE FREE
     Route: 058

REACTIONS (12)
  - Blood pressure abnormal [Recovering/Resolving]
  - Myalgia [Recovered/Resolved]
  - Blood iron decreased [Unknown]
  - Musculoskeletal chest pain [Unknown]
  - Dyspnoea [Unknown]
  - Headache [Recovered/Resolved]
  - Throat irritation [Unknown]
  - Renal disorder [Unknown]
  - Inflammation [Unknown]
  - Blood potassium decreased [Unknown]
  - Hepatic function abnormal [Unknown]
  - Heart rate irregular [Unknown]
